FAERS Safety Report 9467491 (Version 1)
Quarter: 2013Q3

REPORT INFORMATION
  Report Type: Report from Study
  Country: DE (occurrence: DE)
  Receive Date: 20130821
  Receipt Date: 20130821
  Transmission Date: 20140515
  Serious: Yes (Other)
  Sender: FDA-Public Use
  Company Number: DE-ROCHE-1261335

PATIENT
  Age: 56 Year
  Sex: Male
  Weight: 74.3 kg

DRUGS (1)
  1. BEVACIZUMAB [Suspect]
     Indication: BRONCHIAL CARCINOMA
     Dosage: (FREQUENCY 60 MIN INFUSION)
     Route: 042
     Dates: start: 20130720, end: 20130720

REACTIONS (2)
  - Device related infection [Unknown]
  - C-reactive protein increased [Unknown]
